FAERS Safety Report 15145056 (Version 3)
Quarter: 2019Q2

REPORT INFORMATION
  Report Type: Report from Study
  Country: US (occurrence: US)
  Receive Date: 20180713
  Receipt Date: 20190628
  Transmission Date: 20190711
  Serious: Yes (Death, Hospitalization)
  Sender: FDA-Public Use
  Company Number: US-ACTELION-A-NJ2018-172475

PATIENT
  Age: 82 Year
  Sex: Female

DRUGS (1)
  1. OPSUMIT [Suspect]
     Active Substance: MACITENTAN
     Indication: PULMONARY ARTERIAL HYPERTENSION
     Dosage: 10 MG, QD
     Route: 048
     Dates: start: 20170821

REACTIONS (5)
  - Dysphagia [Unknown]
  - Urinary tract infection [Unknown]
  - Death [Fatal]
  - Oesophageal oedema [Unknown]
  - Vomiting [Unknown]

NARRATIVE: CASE EVENT DATE: 201904
